FAERS Safety Report 5339896-8 (Version None)
Quarter: 2007Q2

REPORT INFORMATION
  Report Type: 
  Country: None (occurrence: None)
  Receive Date: 20070529
  Receipt Date: 20070516
  Transmission Date: 20071010
  Serious: Yes (Other)
  Sender: FDA-Public Use
  Company Number: S07-USA-01345-01

PATIENT
  Age: 66 Year
  Sex: Female
  Weight: 61.6892 kg

DRUGS (22)
  1. LEXAPRO [Suspect]
     Indication: ANXIETY
     Dosage: 10 MG QD PO
     Route: 048
     Dates: start: 20070313, end: 20070401
  2. LEXAPRO [Suspect]
     Indication: DEPRESSION
     Dosage: 10 MG QD PO
     Route: 048
     Dates: start: 20070313, end: 20070401
  3. HUMALOG [Concomitant]
  4. LANTUS [Concomitant]
  5. FOSAMAX [Concomitant]
  6. LISINOPRIL AND HYDROCHLOROTHIAZIDE [Concomitant]
  7. SYNTHROID [Concomitant]
  8. ASPIRIN [Concomitant]
  9. TYLENOL ARTHRITIS (PARACEMATOL) [Concomitant]
  10. NEURONTIN [Concomitant]
  11. LIPITOR [Concomitant]
  12. LUNESTA [Concomitant]
  13. CLARINEX [Concomitant]
  14. BETAGEN (LEVOBUNOLOL HYDROCHLORIDE) [Concomitant]
  15. PREDNISONE TAB [Concomitant]
  16. OMEGA-3/OMEGA-6 FISH OIL [Concomitant]
  17. GLUCOSAMINE CHONDROITIN [Concomitant]
  18. MULTIVITAMIN (NOS) [Concomitant]
  19. ZINC [Concomitant]
  20. MAGNESIUM SULFATE [Concomitant]
  21. CALCIUM + D [Concomitant]
  22. BIOTIN [Concomitant]

REACTIONS (5)
  - BLOOD GLUCOSE DECREASED [None]
  - DIZZINESS [None]
  - FATIGUE [None]
  - MASS [None]
  - SOMNOLENCE [None]
